FAERS Safety Report 13763596 (Version 3)
Quarter: 2017Q4

REPORT INFORMATION
  Report Type: Spontaneous
  Country: US (occurrence: US)
  Receive Date: 20170718
  Receipt Date: 20171023
  Transmission Date: 20180320
  Serious: Yes (Other)
  Sender: FDA-Public Use
  Company Number: US-DRREDDYS-USA/USA/17/0092066

PATIENT
  Age: 82 Year
  Sex: Female

DRUGS (2)
  1. ZOLEDRONIC ACID [Suspect]
     Active Substance: ZOLEDRONIC ACID
     Indication: OSTEOPOROSIS
     Route: 065
     Dates: start: 20170628, end: 201707
  2. ZOLEDRONIC ACID [Suspect]
     Active Substance: ZOLEDRONIC ACID
     Route: 042
     Dates: start: 2017

REACTIONS (5)
  - Eyelid ptosis [Recovering/Resolving]
  - Iritis [Recovering/Resolving]
  - Parophthalmia [Recovering/Resolving]
  - Periorbital oedema [Recovering/Resolving]
  - Visual impairment [Recovering/Resolving]
